FAERS Safety Report 4865688-X (Version None)
Quarter: 2005Q4

REPORT INFORMATION
  Report Type: 
  Country: None (occurrence: None)
  Receive Date: 20051220
  Receipt Date: 20051208
  Transmission Date: 20060501
  Serious: Yes (Hospitalization)
  Sender: FDA-Public Use
  Company Number: 2005PV004383

PATIENT
  Age: 36 Year
  Sex: Female

DRUGS (11)
  1. BYETTA [Suspect]
     Indication: DIABETES MELLITUS NON-INSULIN-DEPENDENT
     Dosage: 5 MCG;BID;SC
     Route: 058
     Dates: start: 20051104, end: 20051112
  2. ACTOS [Concomitant]
  3. ALTACE [Concomitant]
  4. LIPITOR [Concomitant]
  5. GLUCOSAMINE [Concomitant]
  6. LOBELIA HERB [Concomitant]
  7. HORSE CHESTNUT EXTRACT [Concomitant]
  8. ALBUTEROL [Concomitant]
  9. LO/OVRAL [Concomitant]
  10. FISH OIL [Concomitant]
  11. PRANDIN [Concomitant]

REACTIONS (18)
  - ABDOMINAL PAIN [None]
  - ANGIONEUROTIC OEDEMA [None]
  - ARTHRALGIA [None]
  - CHEST DISCOMFORT [None]
  - COUGH [None]
  - FOOD ALLERGY [None]
  - HEADACHE [None]
  - MUSCLE SPASMS [None]
  - MYALGIA [None]
  - NAUSEA [None]
  - ORAL PRURITUS [None]
  - PARAESTHESIA ORAL [None]
  - PRURITUS [None]
  - SINUS CONGESTION [None]
  - SPEECH DISORDER [None]
  - SWOLLEN TONGUE [None]
  - THROAT TIGHTNESS [None]
  - WEIGHT DECREASED [None]
